FAERS Safety Report 16322477 (Version 2)
Quarter: 2019Q2

REPORT INFORMATION
  Report Type: Spontaneous
  Country: AT (occurrence: AT)
  Receive Date: 20190516
  Receipt Date: 20190527
  Transmission Date: 20190711
  Serious: Yes (Hospitalization)
  Sender: FDA-Public Use
  Company Number: AT-ELI_LILLY_AND_COMPANY-AT201905005198

PATIENT
  Age: 68 Year
  Sex: Male

DRUGS (3)
  1. CYRAMZA [Suspect]
     Active Substance: RAMUCIRUMAB
     Dosage: 50 ML
     Route: 065
  2. CYRAMZA [Suspect]
     Active Substance: RAMUCIRUMAB
     Indication: BRONCHIAL NEOPLASM
     Dosage: 10 ML
     Route: 065
     Dates: start: 20190425
  3. CYRAMZA [Suspect]
     Active Substance: RAMUCIRUMAB
     Dosage: 10 ML
     Route: 065
     Dates: end: 20190425

REACTIONS (5)
  - Hyperhidrosis [Unknown]
  - Hypersensitivity [Unknown]
  - Respiratory tract irritation [Unknown]
  - Dyspnoea [Unknown]
  - Urticaria [Unknown]

NARRATIVE: CASE EVENT DATE: 20190425
